FAERS Safety Report 12267953 (Version 1)
Quarter: 2016Q2

REPORT INFORMATION
  Report Type: Report from Study
  Country: JP (occurrence: JP)
  Receive Date: 20160414
  Receipt Date: 20160414
  Transmission Date: 20160815
  Serious: Yes (Death, Hospitalization, Other)
  Sender: FDA-Public Use
  Company Number: JP-009507513-1512JPN010766

PATIENT
  Age: 65 Year
  Sex: Female
  Weight: 46 kg

DRUGS (13)
  1. TEMODAL [Suspect]
     Active Substance: TEMOZOLOMIDE
     Indication: GLIOBLASTOMA MULTIFORME
     Dosage: 75 MG/M2, QD
     Route: 048
     Dates: start: 20130815, end: 20130920
  2. TEMODAL [Suspect]
     Active Substance: TEMOZOLOMIDE
     Dosage: DAILY DOSAGE UNKNOWN
     Route: 048
     Dates: start: 20140224, end: 20140228
  3. TEMODAL [Suspect]
     Active Substance: TEMOZOLOMIDE
     Dosage: DAILY DOSAGE UNKNOWN
     Route: 048
     Dates: start: 20140422, end: 20140426
  4. ALEVIATIN [Suspect]
     Active Substance: PHENYTOIN SODIUM
     Indication: EPILEPSY
     Dosage: DAILY DOSAGE UNKNOWN
     Route: 042
     Dates: start: 20140401, end: 20140404
  5. TEMODAL [Suspect]
     Active Substance: TEMOZOLOMIDE
     Dosage: 150 MG/M2, QD
     Route: 048
     Dates: start: 20131028, end: 20131101
  6. GASTER [Concomitant]
     Active Substance: FAMOTIDINE
     Indication: PROPHYLAXIS
     Dosage: DAILY DOSAGE UNKNOWN,FORMULATION: POR
     Route: 048
     Dates: start: 20130725
  7. TEMOZOLOMIDE. [Suspect]
     Active Substance: TEMOZOLOMIDE
     Indication: GLIOBLASTOMA MULTIFORME
     Dosage: 75 MG/M2, QD
     Route: 041
     Dates: start: 20130808, end: 20130814
  8. TEMODAL [Suspect]
     Active Substance: TEMOZOLOMIDE
     Dosage: DAILY DOSAGE UNKNOWN
     Route: 048
     Dates: start: 20140124, end: 20140128
  9. TEMODAL [Suspect]
     Active Substance: TEMOZOLOMIDE
     Dosage: DAILY DOSAGE UNKNOWN
     Route: 048
     Dates: start: 20131220, end: 20131224
  10. TEMODAL [Suspect]
     Active Substance: TEMOZOLOMIDE
     Dosage: 200 MG/M2, QD
     Route: 048
     Dates: start: 20140305, end: 20140309
  11. TEMODAL [Suspect]
     Active Substance: TEMOZOLOMIDE
     Dosage: DAILY DOSAGE UNKNOWN
     Route: 048
     Dates: start: 20131129, end: 20131203
  12. EXCEGRAN [Concomitant]
     Active Substance: ZONISAMIDE
     Indication: PROPHYLAXIS
     Dosage: DAILY DOSAGE UNKNOWN,FORMULATION: POR
     Route: 048
     Dates: start: 20130727
  13. BAKTAR [Concomitant]
     Active Substance: SULFAMETHOXAZOLE\TRIMETHOPRIM
     Indication: ANTIFUNGAL PROPHYLAXIS
     Dosage: DAILY DOSE UNKNOWN,FORMULATION: POR
     Route: 048
     Dates: start: 20130816

REACTIONS (4)
  - Glioblastoma multiforme [Fatal]
  - Hepatic function abnormal [Not Recovered/Not Resolved]
  - Epilepsy [Recovering/Resolving]
  - Lymphocyte count decreased [Not Recovered/Not Resolved]

NARRATIVE: CASE EVENT DATE: 20130909
